FAERS Safety Report 10149938 (Version 1)
Quarter: 2014Q2

REPORT INFORMATION
  Report Type: Spontaneous
  Country: US (occurrence: None)
  Receive Date: 20140501
  Receipt Date: 20140501
  Transmission Date: 20141212
  Serious: No
  Sender: FDA-Public Use
  Company Number: None

PATIENT
  Age: 43 Year
  Sex: Female
  Weight: 146.97 kg

DRUGS (1)
  1. TRAMADOL [Suspect]
     Indication: ARTHRALGIA
     Dosage: 1-2 PILLS PER 6-8 HRS EVERY 6-8 HRS PRN TAKEN BY MOUTH
     Route: 048
     Dates: start: 20140429, end: 20140429

REACTIONS (1)
  - Pruritus generalised [None]
